FAERS Safety Report 8320392-0 (Version None)
Quarter: 2012Q2

REPORT INFORMATION
  Report Type: 
  Country: None (occurrence: None)
  Receive Date: 20120430
  Receipt Date: 20120420
  Transmission Date: 20120825
  Serious: Yes (Hospitalization, Other)
  Sender: FDA-Public Use
  Company Number: FR-PAR PHARMACEUTICAL, INC-2012SCPR004337

PATIENT

DRUGS (2)
  1. OLANZAPINE [Suspect]
     Indication: PRODUCT USED FOR UNKNOWN INDICATION
     Dosage: UNK, UNKNOWN
     Route: 048
  2. DEPAKOTE [Suspect]
     Indication: PRODUCT USED FOR UNKNOWN INDICATION
     Dosage: 50 TABLETS
     Route: 048

REACTIONS (11)
  - AGITATION [None]
  - SUICIDE ATTEMPT [None]
  - DEPRESSED LEVEL OF CONSCIOUSNESS [None]
  - UNRESPONSIVE TO STIMULI [None]
  - LACTIC ACIDOSIS [None]
  - MIOSIS [None]
  - CONFUSIONAL STATE [None]
  - TOXICITY TO VARIOUS AGENTS [None]
  - HYPOKALAEMIA [None]
  - HYPERAMMONAEMIA [None]
  - TACHYCARDIA [None]
